FAERS Safety Report 19053745 (Version 3)
Quarter: 2022Q1

REPORT INFORMATION
  Report Type: Spontaneous
  Country: PL (occurrence: PL)
  Receive Date: 20210324
  Receipt Date: 20220117
  Transmission Date: 20220423
  Serious: Yes (Other)
  Sender: FDA-Public Use
  Company Number: PL-BOEHRINGERINGELHEIM-2021-BI-090455

PATIENT
  Age: 55 Year
  Sex: Female
  Weight: 97 kg

DRUGS (6)
  1. SYNJARDY [Suspect]
     Active Substance: EMPAGLIFLOZIN\METFORMIN HYDROCHLORIDE
     Indication: Type 2 diabetes mellitus
     Dosage: 12.5 / 1000 MG
     Route: 048
     Dates: start: 20181108, end: 202101
  2. SYNJARDY [Suspect]
     Active Substance: EMPAGLIFLOZIN\METFORMIN HYDROCHLORIDE
     Dosage: 5 / 1000 MG
     Route: 048
     Dates: start: 202101
  3. LEVOTHYROXINE SODIUM [Concomitant]
     Active Substance: LEVOTHYROXINE SODIUM
     Indication: Autoimmune thyroiditis
     Dosage: IN THE MORNING, FOR 20 YEARS
     Route: 048
  4. EPLERENONE [Concomitant]
     Active Substance: EPLERENONE
     Indication: Hypertension
     Route: 048
  5. Tulip [Concomitant]
     Indication: Hypercholesterolaemia
     Dosage: IN THE EVENING
     Route: 048
  6. ERGOCALCIFEROL [Concomitant]
     Active Substance: ERGOCALCIFEROL
     Indication: Supplementation therapy
     Route: 048

REACTIONS (5)
  - Retinal detachment [Recovered/Resolved]
  - Dehydration [Unknown]
  - Psoriasis [Unknown]
  - Diabetes mellitus inadequate control [Not Recovered/Not Resolved]
  - Vitreous disorder [Recovered/Resolved]

NARRATIVE: CASE EVENT DATE: 20190326
